FAERS Safety Report 8799126 (Version 1)
Quarter: 2012Q4

REPORT INFORMATION
  Report Type: 
  Country: US (occurrence: US)
  Receive Date: 20120920
  Receipt Date: 20120920
  Transmission Date: 20130627
  Serious: Yes (Other)
  Sender: FDA-Public Use
  Company Number: US-ASTRAZENECA-2012SE00091

PATIENT

DRUGS (4)
  1. LISINOPRIL [Suspect]
     Route: 048
  2. PRAVASTATIN [Concomitant]
  3. DIOVAN [Concomitant]
  4. CALCIUM + VIT D [Concomitant]

REACTIONS (2)
  - Angioedema [Unknown]
  - Drug hypersensitivity [Unknown]
